FAERS Safety Report 23499404 (Version 1)
Quarter: 2024Q1

REPORT INFORMATION
  Report Type: Spontaneous
  Country: US (occurrence: None)
  Receive Date: 20240207
  Receipt Date: 20240207
  Transmission Date: 20240409
  Serious: Yes (Death)
  Sender: FDA-Public Use
  Company Number: None

PATIENT
  Age: 59 Year
  Sex: Female
  Weight: 67 kg

DRUGS (1)
  1. YESCARTA [Suspect]
     Active Substance: AXICABTAGENE CILOLEUCEL
     Indication: Diffuse large B-cell lymphoma
     Dosage: FREQUENCY : ONCE;?
     Route: 041
     Dates: start: 20220513

REACTIONS (15)
  - Diffuse large B-cell lymphoma recurrent [None]
  - Lymphadenopathy [None]
  - Malignant neoplasm progression [None]
  - Hypercalcaemia [None]
  - Pancytopenia [None]
  - Pyrexia [None]
  - Hypertransaminasaemia [None]
  - Hypotension [None]
  - Viral load increased [None]
  - Epstein-Barr viraemia [None]
  - Haemophagocytic lymphohistiocytosis [None]
  - Chronic active Epstein-Barr virus infection [None]
  - Lymphoproliferative disorder [None]
  - Hyperbilirubinaemia [None]
  - Transaminases increased [None]

NARRATIVE: CASE EVENT DATE: 20220712
